FAERS Safety Report 5584899-1 (Version None)
Quarter: 2008Q1

REPORT INFORMATION
  Report Type: 
  Country: None (occurrence: None)
  Receive Date: 20080104
  Receipt Date: 20071219
  Transmission Date: 20080703
  Serious: Yes (Hospitalization, Other)
  Sender: FDA-Public Use
  Company Number: 2006-02101

PATIENT
  Age: 62 Year
  Sex: Male
  Weight: 75 kg

DRUGS (2)
  1. VELCADE [Suspect]
     Indication: SQUAMOUS CELL CARCINOMA
     Dosage: 1.30 MG/M2, IV BOLUS
     Route: 040
     Dates: start: 20060213, end: 20060612
  2. IRINOTECAN HCL [Suspect]
     Indication: SQUAMOUS CELL CARCINOMA
     Dosage: 125 MG/M2, INTRAVENOUS
     Route: 042
     Dates: start: 20060213, end: 20060612

REACTIONS (5)
  - DIARRHOEA [None]
  - GRANULOCYTES ABNORMAL [None]
  - HYPOCALCAEMIA [None]
  - ORTHOSTATIC HYPOTENSION [None]
  - WHITE BLOOD CELL DISORDER [None]
